FAERS Safety Report 21471913 (Version 3)
Quarter: 2022Q4

REPORT INFORMATION
  Report Type: Spontaneous
  Country: BR (occurrence: BR)
  Receive Date: 20221018
  Receipt Date: 20221024
  Transmission Date: 20230113
  Serious: Yes (Other)
  Sender: FDA-Public Use
  Company Number: BR-PFIZER INC-202201223021

PATIENT
  Sex: Male

DRUGS (1)
  1. LORAZEPAM [Suspect]
     Active Substance: LORAZEPAM
     Dosage: UNK

REACTIONS (7)
  - Schizophrenia [Unknown]
  - Drug dependence [Unknown]
  - Emotional distress [Unknown]
  - Depressed mood [Unknown]
  - Eating disorder [Unknown]
  - Product use issue [Unknown]
  - Illness [Unknown]
